FAERS Safety Report 10183494 (Version 4)
Quarter: 2014Q4

REPORT INFORMATION
  Report Type: Spontaneous
  Country: CN (occurrence: CN)
  Receive Date: 20140520
  Receipt Date: 20141125
  Transmission Date: 20150528
  Serious: Yes (Other)
  Sender: FDA-Public Use
  Company Number: CN-NAPPMUNDI-GBR-2014-0018358

PATIENT
  Age: 66 Year
  Sex: Male

DRUGS (8)
  1. OXYCONTIN [Suspect]
     Active Substance: OXYCODONE HYDROCHLORIDE
     Dosage: 110 MG, Q12H
     Route: 048
  2. OXYCONTIN [Suspect]
     Active Substance: OXYCODONE HYDROCHLORIDE
     Dosage: 90 MG, Q12H
     Route: 048
     Dates: start: 20140421
  3. OXYCONTIN [Suspect]
     Active Substance: OXYCODONE HYDROCHLORIDE
     Dosage: 140 MG, Q12H
  4. MORPHINE [Concomitant]
     Active Substance: MORPHINE
     Indication: BREAKTHROUGH PAIN
  5. OXYCONTIN [Suspect]
     Active Substance: OXYCODONE HYDROCHLORIDE
     Indication: CANCER PAIN
     Dosage: UNK
     Route: 048
     Dates: start: 20140303, end: 20140421
  6. MORPHINE [Concomitant]
     Active Substance: MORPHINE
     Indication: CANCER PAIN
     Dosage: 25 MG, DAILY (10 MG IN DAYTIME+15 MG IN EVENING)
     Route: 058
  7. CHEMOTHERAPEUTICS [Concomitant]
     Active Substance: UNSPECIFIED INGREDIENT
     Indication: LUNG NEOPLASM MALIGNANT
  8. OXYCONTIN [Suspect]
     Active Substance: OXYCODONE HYDROCHLORIDE
     Dosage: 90 MG, Q12H
     Dates: end: 20140611

REACTIONS (5)
  - Breakthrough pain [Recovered/Resolved]
  - Mental disorder [Recovered/Resolved]
  - Delirium [Recovered/Resolved]
  - Inadequate analgesia [Unknown]
  - Hallucination, auditory [Recovered/Resolved]

NARRATIVE: CASE EVENT DATE: 20140421
